FAERS Safety Report 22921810 (Version 5)
Quarter: 2023Q4

REPORT INFORMATION
  Report Type: Spontaneous
  Country: CA (occurrence: CA)
  Receive Date: 20230908
  Receipt Date: 20231110
  Transmission Date: 20240110
  Serious: Yes (Other)
  Sender: FDA-Public Use
  Company Number: CA-CELLTRION INC.-2020CA017862

PATIENT

DRUGS (36)
  1. INFLECTRA [Suspect]
     Active Substance: INFLIXIMAB-DYYB
     Indication: Colitis ulcerative
     Dosage: 635 MG, EVERY 4 WEEKS
     Route: 042
     Dates: start: 20200717
  2. INFLECTRA [Suspect]
     Active Substance: INFLIXIMAB-DYYB
     Dosage: 635 MG, EVERY 4 WEEKS
     Route: 042
     Dates: start: 20201106
  3. INFLECTRA [Suspect]
     Active Substance: INFLIXIMAB-DYYB
     Dosage: 635 MG, EVERY 4 WEEKS
     Route: 042
     Dates: start: 20201204
  4. INFLECTRA [Suspect]
     Active Substance: INFLIXIMAB-DYYB
     Dosage: 635 MG, EVERY 4 WEEKS
     Route: 042
     Dates: start: 20210118, end: 20210118
  5. INFLECTRA [Suspect]
     Active Substance: INFLIXIMAB-DYYB
     Dosage: 500 MG
     Route: 042
     Dates: start: 20210219
  6. INFLECTRA [Suspect]
     Active Substance: INFLIXIMAB-DYYB
     Dosage: 635 MG, EVERY 4 WEEKS
     Route: 042
     Dates: start: 20210319
  7. INFLECTRA [Suspect]
     Active Substance: INFLIXIMAB-DYYB
     Dosage: 635 MG, EVERY 4 WEEKS
     Route: 042
     Dates: start: 20210429
  8. INFLECTRA [Suspect]
     Active Substance: INFLIXIMAB-DYYB
     Dosage: 635 MG, EVERY 4 WEEKS
     Route: 042
     Dates: start: 20210528
  9. INFLECTRA [Suspect]
     Active Substance: INFLIXIMAB-DYYB
     Dosage: 635 MG, EVERY 4 WEEKS
     Route: 042
     Dates: start: 20210625
  10. INFLECTRA [Suspect]
     Active Substance: INFLIXIMAB-DYYB
     Dosage: 635 MG, EVERY 4 WEEKS
     Route: 042
     Dates: start: 20210824
  11. INFLECTRA [Suspect]
     Active Substance: INFLIXIMAB-DYYB
     Dosage: 635 MG, EVERY 4 WEEKS
     Route: 042
     Dates: start: 20210924
  12. INFLECTRA [Suspect]
     Active Substance: INFLIXIMAB-DYYB
     Dosage: 635 MG, EVERY 4 WEEKS
     Route: 042
     Dates: start: 20211022, end: 20211022
  13. INFLECTRA [Suspect]
     Active Substance: INFLIXIMAB-DYYB
     Dosage: 635 MG, EVERY 4 WEEKS
     Route: 042
     Dates: start: 20211119
  14. INFLECTRA [Suspect]
     Active Substance: INFLIXIMAB-DYYB
     Dosage: 635 MG, EVERY 4 WEEKS
     Route: 042
     Dates: start: 20211217
  15. INFLECTRA [Suspect]
     Active Substance: INFLIXIMAB-DYYB
     Dosage: 635 MG, EVERY 4 WEEKS
     Route: 042
     Dates: start: 20220114
  16. INFLECTRA [Suspect]
     Active Substance: INFLIXIMAB-DYYB
     Dosage: 635 MG, EVERY 4 WEEKS
     Route: 042
     Dates: start: 20220211, end: 20220211
  17. INFLECTRA [Suspect]
     Active Substance: INFLIXIMAB-DYYB
     Dosage: 635 MG, EVERY 4 WEEKS
     Route: 042
     Dates: start: 20220311, end: 20220311
  18. INFLECTRA [Suspect]
     Active Substance: INFLIXIMAB-DYYB
     Dosage: 625 MG, EVERY 4 WEEKS
     Route: 042
     Dates: start: 20220506
  19. INFLECTRA [Suspect]
     Active Substance: INFLIXIMAB-DYYB
     Dosage: 10 MG/KG, EVERY 4 WEEKS
     Route: 042
     Dates: start: 20220605
  20. INFLECTRA [Suspect]
     Active Substance: INFLIXIMAB-DYYB
     Dosage: 10 MG/KG, EVERY 4 WEEKS
     Route: 042
     Dates: start: 20220630
  21. INFLECTRA [Suspect]
     Active Substance: INFLIXIMAB-DYYB
     Dosage: 10 MG/KG, EVERY 4 WEEKS
     Route: 042
     Dates: start: 20220729
  22. INFLECTRA [Suspect]
     Active Substance: INFLIXIMAB-DYYB
     Dosage: 10 MG/KG, EVERY 4 WEEKS
     Route: 042
     Dates: start: 20221028, end: 20221028
  23. INFLECTRA [Suspect]
     Active Substance: INFLIXIMAB-DYYB
     Dosage: 10 MG/KG, EVERY 4 WEEKS
     Route: 042
  24. INFLECTRA [Suspect]
     Active Substance: INFLIXIMAB-DYYB
     Dosage: 10 MG/KG, EVERY 4 WEEKS
     Route: 042
     Dates: start: 20221125
  25. INFLECTRA [Suspect]
     Active Substance: INFLIXIMAB-DYYB
     Dosage: 1300 MG, 10 MG/KG, EVERY 4 WEEKS
     Route: 042
     Dates: start: 20221223, end: 20221223
  26. INFLECTRA [Suspect]
     Active Substance: INFLIXIMAB-DYYB
     Dosage: 1300 MG (10 MG/KG (ROUNDED) EVERY 4 WEEKS
     Route: 042
     Dates: start: 20230217, end: 20230217
  27. INFLECTRA [Suspect]
     Active Substance: INFLIXIMAB-DYYB
     Dosage: 10 MG/KG EVERY 4 WEEKS
     Route: 042
     Dates: start: 20230317, end: 20230317
  28. INFLECTRA [Suspect]
     Active Substance: INFLIXIMAB-DYYB
     Dosage: 1200 MG (10 MG/KG EVERY 4 WEEKS)
     Route: 042
     Dates: start: 20230512, end: 20230512
  29. INFLECTRA [Suspect]
     Active Substance: INFLIXIMAB-DYYB
     Dosage: 10 MG/KG, EVERY 4 WEEKS
     Route: 042
     Dates: start: 20230609, end: 20230609
  30. INFLECTRA [Suspect]
     Active Substance: INFLIXIMAB-DYYB
     Dosage: 1200 MG, (10MG/KG) EVERY 4 WEEKS
     Route: 042
     Dates: start: 20230706, end: 20230706
  31. INFLECTRA [Suspect]
     Active Substance: INFLIXIMAB-DYYB
     Dosage: 1200 MG, (10MG/KG) EVERY 4 WEEKS
     Route: 042
     Dates: start: 20230901
  32. INFLECTRA [Suspect]
     Active Substance: INFLIXIMAB-DYYB
     Dosage: 1200 MG, (10MG/KG) EVERY 4 WEEKS
     Route: 042
     Dates: start: 20230929
  33. INFLECTRA [Suspect]
     Active Substance: INFLIXIMAB-DYYB
     Dosage: 1200MG AFTER 5 WEEKS
     Route: 042
     Dates: start: 20231102
  34. CHLORTHALIDONE [Concomitant]
     Active Substance: CHLORTHALIDONE
     Dosage: 1 DF, UNKNOWN DOSAGE AND FREQUENCY
     Route: 065
  35. RABEPRAZOLE [Concomitant]
     Active Substance: RABEPRAZOLE
     Dosage: 1 DF, UNKNOWN DOSAGE AND FREQUENCY
     Route: 065
  36. VENLAFAXINE [Concomitant]
     Active Substance: VENLAFAXINE HYDROCHLORIDE
     Dosage: 1 DF, UNKNOWN DOSAGE AND FREQUENCY
     Route: 065

REACTIONS (17)
  - Weight decreased [Not Recovered/Not Resolved]
  - Blood pressure fluctuation [Not Recovered/Not Resolved]
  - Blood pressure increased [Recovered/Resolved]
  - Blood pressure systolic increased [Not Recovered/Not Resolved]
  - Body temperature decreased [Recovered/Resolved]
  - Body temperature decreased [Not Recovered/Not Resolved]
  - Dizziness [Unknown]
  - Malaise [Unknown]
  - Oropharyngeal pain [Unknown]
  - Sinus disorder [Unknown]
  - Heart rate decreased [Unknown]
  - Off label use [Unknown]
  - Off label use [Unknown]
  - Off label use [Unknown]
  - Intentional product use issue [Unknown]
  - Incorrect dose administered [Unknown]
  - Inappropriate schedule of product administration [Unknown]

NARRATIVE: CASE EVENT DATE: 20200717
